FAERS Safety Report 6233513-0 (Version None)
Quarter: 2009Q2

REPORT INFORMATION
  Report Type: 
  Country: None (occurrence: None)
  Receive Date: 20090617
  Receipt Date: 20090608
  Transmission Date: 20091009
  Serious: Yes (Hospitalization)
  Sender: FDA-Public Use
  Company Number: PHHO2009HK07042

PATIENT
  Sex: Male
  Weight: 67.5 kg

DRUGS (5)
  1. CERTICAN [Suspect]
     Indication: HEPATIC NEOPLASM MALIGNANT
     Dosage: 5 MG
     Route: 048
  2. BLINDED NO TREATMENT RECEIVED NOMED [Suspect]
     Indication: HEPATIC NEOPLASM MALIGNANT
     Dosage: NO TREATMENT
  3. BLINDED PLACEBO COMP-PLA+ [Suspect]
     Indication: HEPATIC NEOPLASM MALIGNANT
     Dosage: NO TREATMENT
  4. BLINDED RAD 666 RAD+TAB [Suspect]
     Indication: HEPATIC NEOPLASM MALIGNANT
     Dosage: NO TREATMENT
  5. SORAFENIB [Suspect]
     Indication: HEPATIC NEOPLASM MALIGNANT
     Dosage: 800 MG
     Route: 048

REACTIONS (3)
  - ACTIVITIES OF DAILY LIVING IMPAIRED [None]
  - ARTHRALGIA [None]
  - ARTHRITIS [None]
